FAERS Safety Report 4505843-1 (Version None)
Quarter: 2004Q4

REPORT INFORMATION
  Report Type: 
  Country: None (occurrence: None)
  Receive Date: 20041025
  Receipt Date: 20040512
  Transmission Date: 20050328
  Serious: Yes (Death, Hospitalization)
  Sender: FDA-Public Use
  Company Number: US-JNJFOC-20040304672

PATIENT
  Age: 77 Year
  Sex: Male
  Weight: 99.7913 kg

DRUGS (6)
  1. REMICADE [Suspect]
     Indication: RHEUMATOID ARTHRITIS
     Dosage: 400 MG, INTRAVENOUS; SEE IMAGE
     Route: 042
     Dates: start: 20031120
  2. REMICADE [Suspect]
     Indication: RHEUMATOID ARTHRITIS
     Dosage: 400 MG, INTRAVENOUS; SEE IMAGE
     Route: 042
     Dates: start: 20031204
  3. REMICADE [Suspect]
     Indication: RHEUMATOID ARTHRITIS
     Dosage: 400 MG, INTRAVENOUS; SEE IMAGE
     Route: 042
     Dates: start: 20040102
  4. CELEBREX [Concomitant]
  5. PREDNISONE [Concomitant]
  6. MTX (METHOTREXATE SODIUM) SOLUTION [Concomitant]

REACTIONS (1)
  - PNEUMONITIS CRYPTOCOCCAL [None]
